FAERS Safety Report 23560969 (Version 1)
Quarter: 2024Q1

REPORT INFORMATION
  Report Type: Spontaneous
  Country: US (occurrence: US)
  Receive Date: 20240224
  Receipt Date: 20240224
  Transmission Date: 20240409
  Serious: No
  Sender: FDA-Public Use
  Company Number: US-UNITED THERAPEUTICS-UNT-2024-005220

PATIENT
  Sex: Female

DRUGS (1)
  1. TYVASO [Suspect]
     Active Substance: TREPROSTINIL
     Indication: Pulmonary arterial hypertension
     Dosage: UNK

REACTIONS (1)
  - Product use issue [Unknown]
